FAERS Safety Report 9052339 (Version 4)
Quarter: 2013Q2

REPORT INFORMATION
  Report Type: Spontaneous
  Country: JP (occurrence: JP)
  Receive Date: 20130206
  Receipt Date: 20130531
  Transmission Date: 20140414
  Serious: Yes (Other)
  Sender: FDA-Public Use
  Company Number: JP-MERCK-1301JPN013168

PATIENT
  Age: 40 Year
  Sex: Female
  Weight: 68.8 kg

DRUGS (2)
  1. MK-0000 (001) [Suspect]
     Indication: DEXAMETHASONE SUPPRESSION TEST
     Dosage: UNK
     Route: 065
  2. HYDROCORTISONE [Concomitant]
     Route: 065

REACTIONS (1)
  - Pituitary haemorrhage [Unknown]
